FAERS Safety Report 13797509 (Version 2)
Quarter: 2017Q3

REPORT INFORMATION
  Report Type: Report from Study
  Country: NO (occurrence: NO)
  Receive Date: 20170727
  Receipt Date: 20170814
  Transmission Date: 20171127
  Serious: Yes (Other)
  Sender: FDA-Public Use
  Company Number: NO-ROCHE-1967998

PATIENT

DRUGS (2)
  1. BENDAMUSTINE [Suspect]
     Active Substance: BENDAMUSTINE
     Indication: COLD TYPE HAEMOLYTIC ANAEMIA
     Dosage: DAY 1-2 WITH 28 DAYS
     Route: 065
  2. RITUXIMAB. [Suspect]
     Active Substance: RITUXIMAB
     Indication: COLD TYPE HAEMOLYTIC ANAEMIA
     Dosage: CYCLES OF RITUXIMAB 375MG/M2 DAY 1
     Route: 042

REACTIONS (5)
  - Infection [Unknown]
  - Toxicity to various agents [Unknown]
  - Neutropenia [Unknown]
  - Febrile neutropenia [Unknown]
  - Neutropenic infection [Unknown]
